FAERS Safety Report 8094340 (Version 4)
Quarter: 2013Q2

REPORT INFORMATION
  Report Type: Spontaneous
  Country: US (occurrence: US)
  Receive Date: 20110817
  Receipt Date: 20120703
  Transmission Date: 20140414
  Serious: Yes (Other)
  Sender: FDA-Public Use
  Company Number: PHEH2011US01118

PATIENT
  Age: 64 Year
  Sex: Female

DRUGS (2)
  1. GILENYA [Suspect]
     Indication: MULTIPLE SCLEROSIS
     Dosage: 0.5 MG, QD
     Route: 048
     Dates: start: 20110415
  2. DALFAMPRIDINE [Concomitant]
     Dosage: UNK UKN, UNK

REACTIONS (6)
  - VIRAL INFECTION [Unknown]
  - MALAISE [Unknown]
  - BACTERIAL INFECTION [Unknown]
  - SEASONAL ALLERGY [Recovering/Resolving]
  - NASAL DISCHARGE DISCOLOURATION [Recovering/Resolving]
  - CONDITION AGGRAVATED [Recovering/Resolving]
